FAERS Safety Report 19570290 (Version 1)
Quarter: 2021Q3

REPORT INFORMATION
  Report Type: Spontaneous
  Country: ES (occurrence: ES)
  Receive Date: 20210716
  Receipt Date: 20210716
  Transmission Date: 20211014
  Serious: Yes (Other)
  Sender: FDA-Public Use
  Company Number: ES-BAYER-2021-170719

PATIENT
  Age: 59 Year
  Sex: Male

DRUGS (1)
  1. SORAFENIB (RAF KINASE INHIBITOR) [Suspect]
     Active Substance: SORAFENIB
     Indication: HEPATOCELLULAR CARCINOMA
     Dosage: UNK

REACTIONS (8)
  - Blood creatine phosphokinase increased [None]
  - Speech disorder [None]
  - Terminal state [None]
  - Muscle swelling [None]
  - Diarrhoea [None]
  - Muscular weakness [None]
  - Asthenia [None]
  - Rhabdomyolysis [None]
